FAERS Safety Report 6674695-6 (Version None)
Quarter: 2010Q2

REPORT INFORMATION
  Report Type: 
  Country: None (occurrence: None)
  Receive Date: 20100409
  Receipt Date: 20100331
  Transmission Date: 20101027
  Serious: Yes (Hospitalization)
  Sender: FDA-Public Use
  Company Number: IT-NAPPMUNDI-GBR-2010-0006373

PATIENT
  Sex: Male

DRUGS (6)
  1. OXYCONTIN [Suspect]
     Indication: DRUG USE FOR UNKNOWN INDICATION
     Dosage: 20 MG, BID
     Route: 065
  2. SUTENT                             /05510201/ [Suspect]
     Indication: DRUG USE FOR UNKNOWN INDICATION
     Dosage: 50 MG, DAILY
     Route: 065
  3. DELTACORTENE [Suspect]
     Indication: DRUG USE FOR UNKNOWN INDICATION
     Dosage: 25 MG, DAILY
     Route: 065
  4. DICLOFENAC SODIUM [Concomitant]
     Dosage: 50 MG, UNK
     Route: 065
  5. ACETAMINOPHEN [Concomitant]
     Dosage: 1 UNK, UNK
     Route: 065
  6. CALCIUM CARBONATE [Concomitant]
     Route: 065

REACTIONS (3)
  - HAEMATURIA [None]
  - PETECHIAE [None]
  - THROMBOCYTOPENIA [None]
